FAERS Safety Report 7464597-X (Version None)
Quarter: 2011Q2

REPORT INFORMATION
  Report Type: 
  Country: None (occurrence: None)
  Receive Date: 20110509
  Receipt Date: 20110504
  Transmission Date: 20111010
  Serious: Yes (Other)
  Sender: FDA-Public Use
  Company Number: CA-SANOFI-AVENTIS-2011SA022195

PATIENT
  Age: 80 Year
  Sex: Male

DRUGS (7)
  1. HYDROCHLOROTHIAZIDE [Concomitant]
     Route: 048
  2. LESCOL [Concomitant]
     Route: 048
  3. ADALAT [Concomitant]
     Route: 048
  4. ELIGARD [Suspect]
     Indication: PROSTATE CANCER
     Route: 065
     Dates: start: 20100217, end: 20110113
  5. ATENOLOL [Concomitant]
     Route: 048
  6. RAMIPRIL [Concomitant]
     Route: 048
  7. ALDACTONE [Concomitant]
     Route: 048

REACTIONS (1)
  - PHLEBITIS [None]
